FAERS Safety Report 4821177-X (Version None)
Quarter: 2005Q4

REPORT INFORMATION
  Report Type: 
  Country: None (occurrence: None)
  Receive Date: 20051103
  Receipt Date: 20051021
  Transmission Date: 20060501
  Serious: Yes (Hospitalization, Other)
  Sender: FDA-Public Use
  Company Number: 2005118245

PATIENT
  Age: 31 Year
  Sex: Male

DRUGS (5)
  1. VIAGRA [Suspect]
     Indication: SKIN ULCER
     Dosage: 50 MG (50 MG, 1 IN 1 D),
     Dates: start: 20040101
  2. TRENTAL ^ALBERT-ROUSSEL^ (PENTOXIFYLLINE) [Concomitant]
  3. ASPIRIN [Concomitant]
  4. NEXIUM [Concomitant]
  5. NIFEDIPINE [Concomitant]

REACTIONS (7)
  - CHOLELITHIASIS [None]
  - DYSPNOEA [None]
  - PANCREATITIS [None]
  - PLEURAL EFFUSION [None]
  - PULMONARY EMBOLISM [None]
  - STENT PLACEMENT [None]
  - WEIGHT DECREASED [None]
